FAERS Safety Report 9353664 (Version 1)
Quarter: 2013Q2

REPORT INFORMATION
  Report Type: Spontaneous
  Country: GB (occurrence: GB)
  Receive Date: 20130618
  Receipt Date: 20130618
  Transmission Date: 20140414
  Serious: Yes (Death, Life-Threatening, Hospitalization, Other)
  Sender: FDA-Public Use
  Company Number: GB-B.I. PHARMACEUTICALS,INC./RIDGEFIELD-2013-BI-17192GD

PATIENT
  Age: 88 Year
  Sex: Male

DRUGS (3)
  1. PRADAXA [Suspect]
     Indication: THROMBOSIS PROPHYLAXIS
     Dosage: 150 MG
  2. DALTEPARIN [Suspect]
     Indication: THROMBOSIS PROPHYLAXIS
  3. LANSOPRAZOLE [Concomitant]
     Indication: DYSPEPSIA

REACTIONS (12)
  - Procedural haemorrhage [Fatal]
  - Duodenal perforation [Recovered/Resolved]
  - Acute abdomen [Unknown]
  - Peritonitis [Unknown]
  - Renal failure acute [Unknown]
  - Coagulopathy [Unknown]
  - Sepsis [Unknown]
  - Melaena [Unknown]
  - Haematemesis [Unknown]
  - Anaemia [Unknown]
  - Neutrophilia [Unknown]
  - Thrombocytosis [Unknown]
